FAERS Safety Report 7092513-1 (Version None)
Quarter: 2010Q4

REPORT INFORMATION
  Report Type: 
  Country: None (occurrence: None)
  Receive Date: 20101108
  Receipt Date: 20101108
  Transmission Date: 20110411
  Serious: Yes (Other)
  Sender: FDA-Public Use
  Company Number: None

PATIENT
  Age: 53 Year
  Sex: Female
  Weight: 61.2356 kg

DRUGS (1)
  1. ADVAIR DISKUS 250/50 [Suspect]
     Indication: ASTHMA
     Dosage: ONE PUFF TWO TIMES DAILY INHAL
     Route: 055
     Dates: start: 20000101, end: 20101004

REACTIONS (1)
  - ANGLE CLOSURE GLAUCOMA [None]
